FAERS Safety Report 8306538-9 (Version None)
Quarter: 2012Q2

REPORT INFORMATION
  Report Type: 
  Country: None (occurrence: None)
  Receive Date: 20120420
  Receipt Date: 20120420
  Transmission Date: 20120825
  Serious: No
  Sender: FDA-Public Use
  Company Number: None

PATIENT
  Age: 89 Year
  Sex: Male
  Weight: 88.13 kg

DRUGS (2)
  1. ALBUTEROL [Suspect]
     Indication: ASTHMA
     Dosage: 3 ML QID INHALE
     Route: 055
     Dates: start: 20080223, end: 20080226
  2. ALBUTEROL [Suspect]
     Indication: CHRONIC OBSTRUCTIVE PULMONARY DISEASE
     Dosage: 3 ML QID INHALE
     Route: 055
     Dates: start: 20080223, end: 20080226

REACTIONS (6)
  - TACHYCARDIA [None]
  - PYREXIA [None]
  - TACHYPNOEA [None]
  - RESPIRATORY FAILURE [None]
  - CONFUSIONAL STATE [None]
  - CHRONIC OBSTRUCTIVE PULMONARY DISEASE [None]
